FAERS Safety Report 9202298 (Version 1)
Quarter: 2013Q2

REPORT INFORMATION
  Report Type: Spontaneous
  Country: HR (occurrence: HR)
  Receive Date: 20130401
  Receipt Date: 20130401
  Transmission Date: 20140414
  Serious: Yes (Other)
  Sender: FDA-Public Use
  Company Number: PHHY2013HR029867

PATIENT
  Age: 30 Year
  Sex: Female

DRUGS (2)
  1. LEKOKLAR XL [Suspect]
     Indication: BRONCHITIS
     Dosage: 500 MG, ONCE/SINGLE
     Route: 048
     Dates: start: 20130305, end: 20130305
  2. LUPOCET [Concomitant]

REACTIONS (7)
  - Burning sensation [Recovered/Resolved]
  - Arthralgia [Recovered/Resolved]
  - Panic attack [Recovered/Resolved]
  - Headache [Recovered/Resolved]
  - Asthenia [Recovered/Resolved]
  - Decreased appetite [Recovered/Resolved]
  - Muscle spasms [Recovered/Resolved]
